FAERS Safety Report 8505798-9 (Version None)
Quarter: 2012Q3

REPORT INFORMATION
  Report Type: 
  Country: None (occurrence: None)
  Receive Date: 20120706
  Receipt Date: 20120706
  Transmission Date: 20120928
  Serious: Yes (Life-Threatening)
  Sender: FDA-Public Use
  Company Number: None

PATIENT

DRUGS (1)
  1. INDOCYANINE GREEN [Suspect]
     Indication: IMAGING PROCEDURE
     Dosage: ROUTE BY IV
     Route: 042
     Dates: start: 20120605

REACTIONS (3)
  - DRUG HYPERSENSITIVITY [None]
  - ANAPHYLACTIC REACTION [None]
  - PROCEDURAL HYPOTENSION [None]
